FAERS Safety Report 6059535-0 (Version None)
Quarter: 2009Q1

REPORT INFORMATION
  Report Type: 
  Country: None (occurrence: None)
  Receive Date: 20090130
  Receipt Date: 20090128
  Transmission Date: 20090719
  Serious: Yes (Hospitalization)
  Sender: FDA-Public Use
  Company Number: US-JNJFOC-20081201126

PATIENT
  Sex: Female
  Weight: 60.56 kg

DRUGS (2)
  1. INVEGA [Suspect]
     Indication: DRUG THERAPY
     Route: 048
  2. DAYTRANA [Concomitant]
     Indication: ATTENTION DEFICIT/HYPERACTIVITY DISORDER

REACTIONS (2)
  - EXTRAPYRAMIDAL DISORDER [None]
  - SWOLLEN TONGUE [None]
